FAERS Safety Report 18781878 (Version 1)
Quarter: 2021Q1

REPORT INFORMATION
  Report Type: Spontaneous
  Country: US (occurrence: US)
  Receive Date: 20210125
  Receipt Date: 20210125
  Transmission Date: 20210419
  Serious: Yes (Other)
  Sender: FDA-Public Use
  Company Number: None

PATIENT
  Sex: Male

DRUGS (2)
  1. ALLOPURINOL 100MG [Suspect]
     Active Substance: ALLOPURINOL
  2. ALLOPURINOL 300MG [Suspect]
     Active Substance: ALLOPURINOL

REACTIONS (2)
  - Drug intolerance [None]
  - Hepatic function abnormal [None]
